FAERS Safety Report 7108888-0 (Version None)
Quarter: 2010Q4

REPORT INFORMATION
  Report Type: 
  Country: None (occurrence: None)
  Receive Date: 20101117
  Receipt Date: 20100920
  Transmission Date: 20110411
  Serious: No
  Sender: FDA-Public Use
  Company Number: US-BAYER-201021972BCC

PATIENT
  Age: 69 Year
  Sex: Male
  Weight: 88 kg

DRUGS (3)
  1. ALEVE (CAPLET) [Suspect]
     Indication: ROTATOR CUFF REPAIR
     Dosage: TOTAL DAILY DOSE: 880 MG  UNIT DOSE: 220 MG
     Route: 048
     Dates: start: 20100101
  2. ALEVE (CAPLET) [Suspect]
     Dosage: TOTAL DAILY DOSE: 880 MG  UNIT DOSE: 220 MG
     Route: 048
     Dates: start: 20100501
  3. CELEBREX [Concomitant]
     Route: 065

REACTIONS (1)
  - NO ADVERSE EVENT [None]
